FAERS Safety Report 25972588 (Version 1)
Quarter: 2025Q4

REPORT INFORMATION
  Report Type: Spontaneous
  Country: US (occurrence: None)
  Receive Date: 20251029
  Receipt Date: 20251029
  Transmission Date: 20260117
  Serious: No
  Sender: UCB
  Company Number: US-UCBSA-2025049850

PATIENT

DRUGS (1)
  1. BIMZELX [Suspect]
     Active Substance: BIMEKIZUMAB-BKZX
     Indication: Hidradenitis
     Dosage: 320 MILLIGRAM, EV 2 WEEKS(QOW)

REACTIONS (7)
  - Stomatitis [Not Recovered/Not Resolved]
  - Drooling [Not Recovered/Not Resolved]
  - Diarrhoea [Not Recovered/Not Resolved]
  - Pollakiuria [Not Recovered/Not Resolved]
  - Pruritus [Not Recovered/Not Resolved]
  - Dialysis [Not Recovered/Not Resolved]
  - Blood phosphorus increased [Not Recovered/Not Resolved]
